FAERS Safety Report 6249436-7 (Version None)
Quarter: 2009Q2

REPORT INFORMATION
  Report Type: 
  Country: None (occurrence: None)
  Receive Date: 20090629
  Receipt Date: 20090617
  Transmission Date: 20091009
  Serious: Yes (Death, Hospitalization)
  Sender: FDA-Public Use
  Company Number: A0759825A

PATIENT
  Age: 57 Year
  Sex: Male
  Weight: 113.6 kg

DRUGS (7)
  1. AVANDIA [Suspect]
     Route: 048
     Dates: start: 20020131, end: 20060714
  2. GLUCOPHAGE [Concomitant]
  3. GLUCOTROL [Concomitant]
  4. VITAMIN E [Concomitant]
  5. GARLIC [Concomitant]
  6. VINEGAR [Concomitant]
  7. TENORMIN [Concomitant]

REACTIONS (2)
  - CARDIAC ARREST [None]
  - CARDIAC FAILURE CONGESTIVE [None]
